FAERS Safety Report 11713158 (Version 1)
Quarter: 2015Q4

REPORT INFORMATION
  Report Type: Spontaneous
  Country: CA (occurrence: CA)
  Receive Date: 20151109
  Receipt Date: 20151109
  Transmission Date: 20160304
  Serious: Yes (Other)
  Sender: FDA-Public Use
  Company Number: PHBS1996CA04218

PATIENT
  Age: 62 Year
  Sex: Male

DRUGS (10)
  1. TRAZODONE [Suspect]
     Active Substance: TRAZODONE HYDROCHLORIDE
     Indication: DEPRESSION
     Route: 065
  2. TRIFLUOPERAZINE [Concomitant]
     Active Substance: TRIFLUOPERAZINE\TRIFLUOPERAZINE HYDROCHLORIDE
     Indication: AGITATION
  3. AMPICILLIN [Concomitant]
     Active Substance: AMPICILLIN
     Indication: COMA
     Route: 065
  4. IMIPRAMINE [Suspect]
     Active Substance: IMIPRAMINE
     Indication: DEPRESSION
     Route: 065
  5. DIAZEPAM. [Concomitant]
     Active Substance: DIAZEPAM
  6. TRIFLUOPERAZINE [Concomitant]
     Active Substance: TRIFLUOPERAZINE\TRIFLUOPERAZINE HYDROCHLORIDE
     Indication: PRESSURE OF SPEECH
  7. MAPROTILINE [Concomitant]
     Active Substance: MAPROTILINE
     Indication: DEPRESSION
     Dosage: 150 MG, UNK
     Route: 065
  8. HALOPERIDOL. [Concomitant]
     Active Substance: HALOPERIDOL
     Indication: AGITATION
     Dosage: 30 MG, UNK
     Route: 065
  9. APO-CHLORPROMAZINE [Concomitant]
     Indication: AGITATION
     Dosage: 600 MG, UNK
     Route: 030
  10. TRIFLUOPERAZINE [Concomitant]
     Active Substance: TRIFLUOPERAZINE\TRIFLUOPERAZINE HYDROCHLORIDE
     Indication: INSOMNIA
     Route: 065

REACTIONS (2)
  - Neuroleptic malignant syndrome [Unknown]
  - Irritability [Unknown]
